FAERS Safety Report 11255627 (Version 3)
Quarter: 2016Q4

REPORT INFORMATION
  Report Type: Spontaneous
  Country: IT (occurrence: IT)
  Receive Date: 20150709
  Receipt Date: 20161220
  Transmission Date: 20170206
  Serious: Yes (Death, Other)
  Sender: FDA-Public Use
  Company Number: IT-TEVA-575989ISR

PATIENT
  Age: 39 Year
  Sex: Male

DRUGS (5)
  1. YONDELIS [Suspect]
     Active Substance: TRABECTEDIN
     Indication: EWING^S SARCOMA
     Dosage: 1 MG/M2, 1 IN 28 DAY 24 HOUR.ON DAY 1 OF EACH CYCLE
     Route: 041
     Dates: start: 20130918, end: 20140708
  2. IRINOTECAN [Suspect]
     Active Substance: IRINOTECAN
     Indication: EWING^S SARCOMA
     Dosage: 75 MG/M2, 1 IN 28 DAY
     Route: 065
     Dates: start: 20131016
  3. G-CSF (GRANULOCYTE COLONY STIMULATING FACTOR) UNSPECIFIED [Concomitant]
     Indication: SUPPORTIVE CARE
     Route: 065
  4. IRINOTECAN [Suspect]
     Active Substance: IRINOTECAN
     Indication: EWING^S SARCOMA
     Dosage: 75 MG/M2, 2 IN 3 WEEK
     Route: 065
     Dates: start: 20130210, end: 20140711
  5. DEXAMETHASONE. [Concomitant]
     Active Substance: DEXAMETHASONE
     Indication: PREMEDICATION
     Dosage: 20 MG/M2, 30 MINUTES PRIOR TO TRABECTEDIN INFUSION
     Route: 065

REACTIONS (7)
  - Hepatotoxicity [Recovered/Resolved]
  - Haematotoxicity [Recovered/Resolved]
  - Sudden death [Fatal]
  - Transaminases increased [Unknown]
  - Cerebrovascular accident [Fatal]
  - Diarrhoea [Recovered/Resolved]
  - Off label use [Unknown]
